FAERS Safety Report 13749490 (Version 1)
Quarter: 2017Q3

REPORT INFORMATION
  Report Type: Spontaneous
  Country: AU (occurrence: AU)
  Receive Date: 20170713
  Receipt Date: 20170713
  Transmission Date: 20171127
  Serious: Yes (Other)
  Sender: FDA-Public Use
  Company Number: PHHY2016AU158659

PATIENT
  Age: 53 Year
  Sex: Male

DRUGS (11)
  1. VITAMIN D [Concomitant]
     Active Substance: CHOLECALCIFEROL
     Indication: PRODUCT USED FOR UNKNOWN INDICATION
     Dosage: 5000 U, QD
     Route: 065
  2. SIMVASTATIN. [Concomitant]
     Active Substance: SIMVASTATIN
     Indication: PRODUCT USED FOR UNKNOWN INDICATION
     Dosage: 40 MG, QD
     Route: 065
  3. NOVORAPID [Concomitant]
     Active Substance: INSULIN ASPART
     Indication: PRODUCT USED FOR UNKNOWN INDICATION
     Dosage: 10 U, TID
     Route: 065
  4. PREGABALIN. [Concomitant]
     Active Substance: PREGABALIN
     Dosage: 50 MG, UNK (NOCTE)
     Route: 065
  5. GILENYA [Suspect]
     Active Substance: FINGOLIMOD HYDROCHLORIDE
     Indication: RELAPSING-REMITTING MULTIPLE SCLEROSIS
     Route: 065
     Dates: start: 201601, end: 20160815
  6. RAMIPRIL. [Concomitant]
     Active Substance: RAMIPRIL
     Indication: PRODUCT USED FOR UNKNOWN INDICATION
     Dosage: 10 MG, QD
     Route: 065
  7. LANTUS [Concomitant]
     Active Substance: INSULIN GLARGINE
     Indication: PRODUCT USED FOR UNKNOWN INDICATION
     Dosage: 44 U, UNK (NOCTE)
     Route: 065
  8. PREGABALIN. [Concomitant]
     Active Substance: PREGABALIN
     Indication: PRODUCT USED FOR UNKNOWN INDICATION
     Dosage: 25 MG, UNK (NOCTE)
     Route: 065
  9. GLUCOSAMIN [Concomitant]
     Indication: PRODUCT USED FOR UNKNOWN INDICATION
     Dosage: UNK UNK, QD
     Route: 065
  10. THYROXINE [Concomitant]
     Active Substance: LEVOTHYROXINE
     Indication: PRODUCT USED FOR UNKNOWN INDICATION
     Dosage: 100 MCG/150MCG ALTERNATE DAYS
     Route: 065
  11. MAGNESIUM [Concomitant]
     Active Substance: MAGNESIUM
     Indication: MUSCLE SPASMS
     Dosage: NOCTE
     Route: 065

REACTIONS (19)
  - Speech disorder [Unknown]
  - Pain in extremity [Unknown]
  - Weight increased [Unknown]
  - Drug ineffective [Unknown]
  - JC virus granule cell neuronopathy [Unknown]
  - Balance disorder [Unknown]
  - Fatigue [Unknown]
  - Dysphagia [Unknown]
  - Nervous system disorder [Unknown]
  - CD4 lymphocytes decreased [Unknown]
  - Nystagmus [Unknown]
  - Clumsiness [Unknown]
  - Ataxia [Unknown]
  - Immunosuppression [Unknown]
  - JC virus test positive [Unknown]
  - Dysarthria [Unknown]
  - Back pain [Unknown]
  - Cerebellar syndrome [Unknown]
  - Temperature intolerance [Unknown]

NARRATIVE: CASE EVENT DATE: 20160701
